FAERS Safety Report 10668745 (Version 1)
Quarter: 2014Q4

REPORT INFORMATION
  Report Type: Spontaneous
  Country: US (occurrence: US)
  Receive Date: 20141222
  Receipt Date: 20141222
  Transmission Date: 20150529
  Serious: No
  Sender: FDA-Public Use
  Company Number: US-PFIZER INC-2014351021

PATIENT
  Age: 53 Year
  Sex: Female
  Weight: 81.18 kg

DRUGS (1)
  1. LYRICA [Suspect]
     Active Substance: PREGABALIN
     Dosage: 1 DF, UNK

REACTIONS (5)
  - Hypoaesthesia [Unknown]
  - Gait disturbance [Unknown]
  - Dizziness [Unknown]
  - Weight increased [Unknown]
  - Lip pain [Unknown]

NARRATIVE: CASE EVENT DATE: 201412
